FAERS Safety Report 9597107 (Version 3)
Quarter: 2014Q2

REPORT INFORMATION
  Report Type: Spontaneous
  Country: IT (occurrence: IT)
  Receive Date: 20131004
  Receipt Date: 20140411
  Transmission Date: 20141212
  Serious: Yes (Hospitalization)
  Sender: FDA-Public Use
  Company Number: IT-WATSON-2013-17805

PATIENT
  Age: 77 Year
  Sex: Male

DRUGS (3)
  1. AMOXICILLIN-CLAVULANIC ACID (UNKNOWN) [Suspect]
     Indication: DENTAL DISORDER PROPHYLAXIS
     Dosage: UNK; UNK
     Route: 048
     Dates: start: 20130717, end: 20130718
  2. KETOPROFEN (UNKNOWN) [Suspect]
     Indication: DENTAL DISORDER PROPHYLAXIS
     Dosage: UNK
     Route: 004
     Dates: start: 20130717, end: 20130718
  3. LIDOCAINE HYDROCHLORIDE [Concomitant]
     Indication: LOCAL ANAESTHESIA
     Route: 004
     Dates: start: 20130718, end: 20130718

REACTIONS (5)
  - Hypersensitivity [Recovered/Resolved]
  - Face oedema [Recovered/Resolved]
  - Rash [Recovered/Resolved]
  - Pruritus [Recovered/Resolved]
  - Condition aggravated [Recovered/Resolved]
